FAERS Safety Report 5177227-7 (Version None)
Quarter: 2006Q4

REPORT INFORMATION
  Report Type: 
  Country: None (occurrence: None)
  Receive Date: 20061218
  Receipt Date: 20061204
  Transmission Date: 20070319
  Serious: No
  Sender: FDA-Public Use
  Company Number: US-ELI_LILLY_AND_COMPANY-US200612000593

PATIENT
  Age: 83 Year
  Sex: Female

DRUGS (2)
  1. CYMBALTA [Suspect]
     Indication: DEPRESSION
     Dosage: 30 MG, DAILY (1/D)
     Dates: start: 20061101, end: 20061101
  2. CYMBALTA [Suspect]
     Dosage: 60 MG, DAILY (1/D)
     Dates: start: 20061101, end: 20061101

REACTIONS (3)
  - ASTHENIA [None]
  - FATIGUE [None]
  - TRANSAMINASES INCREASED [None]
